FAERS Safety Report 6105069-4 (Version None)
Quarter: 2009Q1

REPORT INFORMATION
  Report Type: 
  Country: None (occurrence: None)
  Receive Date: 20090306
  Receipt Date: 20090221
  Transmission Date: 20090719
  Serious: Yes (Death, Hospitalization)
  Sender: FDA-Public Use
  Company Number: JP-PURDUE-MAG_2009_0000771

PATIENT
  Age: 89 Year
  Sex: Female

DRUGS (4)
  1. THEOPHYLLINE [Suspect]
     Indication: ASTHMA
     Route: 048
     Dates: end: 20071202
  2. ZYLORIC                            /00003301/ [Suspect]
     Indication: DRUG USE FOR UNKNOWN INDICATION
     Route: 048
     Dates: end: 20071202
  3. AZULENE [Concomitant]
     Route: 065
     Dates: end: 20071202
  4. LANSOPRAZOLE [Concomitant]
     Route: 065
     Dates: end: 20071202

REACTIONS (1)
  - DRUG RASH WITH EOSINOPHILIA AND SYSTEMIC SYMPTOMS [None]
